FAERS Safety Report 6261750-8 (Version None)
Quarter: 2009Q3

REPORT INFORMATION
  Report Type: 
  Country: None (occurrence: None)
  Receive Date: 20090709
  Receipt Date: 20090706
  Transmission Date: 20100115
  Serious: Yes (Death, Hospitalization, Other)
  Sender: FDA-Public Use
  Company Number: US-TEVA-200933USA

PATIENT
  Age: 25 Year
  Sex: Male

DRUGS (3)
  1. PROPOFOL [Suspect]
     Indication: INTRACRANIAL PRESSURE INCREASED
     Dosage: 30-134 UG/KG/MIN
     Route: 041
  2. PHENYLEPHRINE [Suspect]
     Dosage: 0.04-7.6 ?G/KG/MIN
  3. THIOPENTAL SODIUM [Concomitant]

REACTIONS (1)
  - PROPOFOL INFUSION SYNDROME [None]
